FAERS Safety Report 5971735-4 (Version None)
Quarter: 2008Q4

REPORT INFORMATION
  Report Type: 
  Country: None (occurrence: None)
  Receive Date: 20081201
  Receipt Date: 20081118
  Transmission Date: 20090506
  Serious: Yes (Other)
  Sender: FDA-Public Use
  Company Number: JP-ASTRAZENECA-2008AP08968

PATIENT
  Age: 35 Year
  Sex: Female

DRUGS (2)
  1. DIPRIVAN [Suspect]
     Dosage: DOSE UNKNOWN
     Route: 042
  2. UNSPECIFIED [Concomitant]

REACTIONS (1)
  - ACUTE RESPIRATORY DISTRESS SYNDROME [None]
